FAERS Safety Report 24842560 (Version 1)
Quarter: 2025Q1

REPORT INFORMATION
  Report Type: Spontaneous
  Country: ES (occurrence: ES)
  Receive Date: 20250115
  Receipt Date: 20250115
  Transmission Date: 20250408
  Serious: Yes (Other)
  Sender: NOVARTIS
  Company Number: None

PATIENT
  Age: 52 Year
  Sex: Female

DRUGS (5)
  1. ENTRESTO [Suspect]
     Active Substance: SACUBITRIL\VALSARTAN
     Indication: Dilated cardiomyopathy
     Dosage: 1 DOSAGE FORM, QD (FILM-COATED TABLETS, 28 TABLETS)
     Route: 048
     Dates: start: 202402
  2. CARVEDILOL [Suspect]
     Active Substance: CARVEDILOL
     Indication: Dilated cardiomyopathy
     Dosage: 6.25 MG, QD (2431A)
     Route: 048
     Dates: start: 202401
  3. SIMVASTATIN [Suspect]
     Active Substance: SIMVASTATIN
     Indication: Dilated cardiomyopathy
     Dosage: 40 MG, QD (1023A)
     Route: 048
     Dates: start: 202402
  4. JARDIANCE [Suspect]
     Active Substance: EMPAGLIFLOZIN
     Indication: Dilated cardiomyopathy
     Dosage: 10 MG, QD (30 TABLETS)
     Route: 048
     Dates: start: 202402
  5. SPIRONOLACTONE [Suspect]
     Active Substance: SPIRONOLACTONE
     Indication: Dilated cardiomyopathy
     Dosage: 25 MG, QD (326A)
     Route: 048
     Dates: start: 202401

REACTIONS (1)
  - Anaemia [Not Recovered/Not Resolved]

NARRATIVE: CASE EVENT DATE: 20240425
